FAERS Safety Report 5350391-2 (Version None)
Quarter: 2007Q2

REPORT INFORMATION
  Report Type: 
  Country: None (occurrence: None)
  Receive Date: 20070606
  Receipt Date: 20070606
  Transmission Date: 20071010
  Serious: Yes (Hospitalization)
  Sender: FDA-Public Use
  Company Number: None

PATIENT
  Age: 44 Year
  Sex: Female
  Weight: 114.3065 kg

DRUGS (9)
  1. INSULIN ASPART [Suspect]
  2. TAXOTERE [Concomitant]
  3. METFORMIN HCL [Concomitant]
  4. BENADRYL/ATIVAN/DECADRON (OATS) [Concomitant]
  5. LANSOPRAZOLE [Concomitant]
  6. METOCLOPRAMIDE [Concomitant]
  7. INSULIN GLARGINE [Concomitant]
  8. INSULIN [Concomitant]
  9. LORTAB [Concomitant]

REACTIONS (3)
  - DISORIENTATION [None]
  - HYPERGLYCAEMIA [None]
  - NAUSEA [None]
